FAERS Safety Report 4500522-9 (Version None)
Quarter: 2004Q4

REPORT INFORMATION
  Report Type: 
  Country: None (occurrence: None)
  Receive Date: 20041112
  Receipt Date: 20041112
  Transmission Date: 20050328
  Serious: Yes (Other)
  Sender: FDA-Public Use
  Company Number: None

PATIENT
  Age: 66 Year
  Sex: Female
  Weight: 54.4316 kg

DRUGS (3)
  1. OXYCONTIN [Suspect]
     Indication: OSTEOARTHRITIS
     Dosage: 1 TID PO
     Route: 048
  2. OXYCONTIN [Suspect]
     Indication: SPONDYLOLISTHESIS
     Dosage: 1 TID PO
     Route: 048
  3. PERCOCET [Concomitant]

REACTIONS (5)
  - ACCIDENT [None]
  - DRUG INEFFECTIVE [None]
  - OSTEOARTHRITIS [None]
  - PHARMACEUTICAL PRODUCT COMPLAINT [None]
  - SPONDYLOLISTHESIS [None]
